FAERS Safety Report 7176743-6 (Version None)
Quarter: 2010Q4

REPORT INFORMATION
  Report Type: 
  Country: None (occurrence: None)
  Receive Date: 20101215
  Receipt Date: 20101215
  Transmission Date: 20110411
  Serious: Yes (Death)
  Sender: FDA-Public Use
  Company Number: None

PATIENT
  Age: 68 Year
  Sex: Female

DRUGS (7)
  1. REVLIMID [Suspect]
     Indication: MYELODYSPLASTIC SYNDROME
     Dosage: 10MG DAILY ORALLY
     Route: 048
  2. PREDNISONE [Concomitant]
  3. HYDROXYUREA [Concomitant]
  4. OMEPRAZOLE [Concomitant]
  5. HYDROXYZINE [Concomitant]
  6. HYDROCHLOROTHIAZIDE [Concomitant]
  7. LISINOPRIL [Concomitant]

REACTIONS (4)
  - GASTROINTESTINAL HAEMORRHAGE [None]
  - NO THERAPEUTIC RESPONSE [None]
  - RENAL FAILURE ACUTE [None]
  - THROMBOCYTOPENIA [None]
